FAERS Safety Report 9846237 (Version 1)
Quarter: 2014Q1

REPORT INFORMATION
  Report Type: Report from Study
  Country: BR (occurrence: BR)
  Receive Date: 20140127
  Receipt Date: 20140127
  Transmission Date: 20141002
  Serious: Yes (Other)
  Sender: FDA-Public Use
  Company Number: PHHY2014BR009174

PATIENT
  Age: 73 Year
  Sex: Female
  Weight: 73 kg

DRUGS (4)
  1. ACLASTA [Suspect]
     Indication: OSTEOPENIA
     Dosage: 5 MG, ONE APPLICATION A YEAR
     Route: 042
     Dates: start: 2011
  2. ACLASTA [Suspect]
     Dosage: 5 MG, ONE APPLICATION A YEAR
     Route: 042
     Dates: start: 201201
  3. ACLASTA [Suspect]
     Dosage: 5 MG, ONE APPLICATION A YEAR
     Route: 042
     Dates: start: 201301
  4. CITALOR [Concomitant]
     Indication: BLOOD CHOLESTEROL INCREASED
     Dosage: 1 DF, THREE TIMES A WEEK
     Route: 048
     Dates: start: 2003

REACTIONS (1)
  - Tooth fracture [Recovered/Resolved]
